FAERS Safety Report 11771916 (Version 2)
Quarter: 2015Q4

REPORT INFORMATION
  Report Type: Spontaneous
  Country: US (occurrence: US)
  Receive Date: 20151124
  Receipt Date: 20151204
  Transmission Date: 20160304
  Serious: Yes (Hospitalization)
  Sender: FDA-Public Use
  Company Number: US-ACTAVIS-2015-22088

PATIENT
  Sex: Female

DRUGS (1)
  1. IBANDRONATE (WATSON LABORATORIES) [Suspect]
     Active Substance: IBANDRONATE SODIUM
     Indication: OSTEOPOROSIS
     Dosage: 150 MG, ONCE MONTHLY
     Route: 048

REACTIONS (2)
  - Crohn^s disease [Unknown]
  - Abdominal pain upper [Recovered/Resolved]
